FAERS Safety Report 11695016 (Version 1)
Quarter: 2015Q4

REPORT INFORMATION
  Report Type: Spontaneous
  Country: GB (occurrence: GB)
  Receive Date: 20151103
  Receipt Date: 20151103
  Transmission Date: 20160304
  Serious: Yes (Other)
  Sender: FDA-Public Use
  Company Number: GB-BAXTER-2015BAX059100

PATIENT

DRUGS (1)
  1. TISSEEL [Suspect]
     Active Substance: FIBRINOGEN HUMAN\THROMBIN HUMAN
     Indication: OESOPHAGECTOMY
     Route: 061

REACTIONS (1)
  - Acute respiratory distress syndrome [Unknown]
